FAERS Safety Report 20584691 (Version 2)
Quarter: 2022Q2

REPORT INFORMATION
  Report Type: Spontaneous
  Country: US (occurrence: US)
  Receive Date: 20220311
  Receipt Date: 20220503
  Transmission Date: 20220721
  Serious: No
  Sender: FDA-Public Use
  Company Number: US-PFIZER INC-202200348653

PATIENT
  Age: 48 Year
  Sex: Male

DRUGS (2)
  1. XELJANZ [Suspect]
     Active Substance: TOFACITINIB CITRATE
     Dosage: UNK
  2. TESTOSTERONE [Suspect]
     Active Substance: TESTOSTERONE
     Dosage: UNK

REACTIONS (2)
  - Haemoglobin increased [Unknown]
  - Haematocrit increased [Unknown]
